FAERS Safety Report 19398310 (Version 1)
Quarter: 2021Q2

REPORT INFORMATION
  Report Type: Spontaneous
  Country: US (occurrence: US)
  Receive Date: 20210609
  Receipt Date: 20210609
  Transmission Date: 20210717
  Serious: No
  Sender: FDA-Public Use
  Company Number: None

PATIENT
  Age: 4 Year
  Sex: Male

DRUGS (1)
  1. JADENU [Suspect]
     Active Substance: DEFERASIROX
     Dosage: ?          OTHER DOSE:4.5 POUCHES ORAL;?
     Route: 048
     Dates: start: 20191109

REACTIONS (3)
  - Condition aggravated [None]
  - Product supply issue [None]
  - Therapy interrupted [None]

NARRATIVE: CASE EVENT DATE: 20210609
